FAERS Safety Report 21141808 (Version 1)
Quarter: 2022Q3

REPORT INFORMATION
  Report Type: Spontaneous
  Country: US (occurrence: None)
  Receive Date: 20220727
  Receipt Date: 20220727
  Transmission Date: 20221027
  Serious: No
  Sender: FDA-Public Use
  Company Number: None

PATIENT
  Age: 3 Year
  Sex: Female
  Weight: 16.8 kg

DRUGS (1)
  1. FIDAXOMICIN [Suspect]
     Active Substance: FIDAXOMICIN
     Indication: Clostridium difficile colitis
     Dosage: FREQUENCY : TWICE A DAY;?
     Route: 048
     Dates: start: 20220421, end: 20220427

REACTIONS (14)
  - Viral infection [None]
  - Otitis media acute [None]
  - Cough [None]
  - Lung consolidation [None]
  - Pneumonia [None]
  - Flatulence [None]
  - Abnormal faeces [None]
  - Diarrhoea [None]
  - Abdominal pain [None]
  - Haematochezia [None]
  - Dehydration [None]
  - Clostridium test positive [None]
  - Hallucination, visual [None]
  - Disorientation [None]

NARRATIVE: CASE EVENT DATE: 20220427
